FAERS Safety Report 4485334-7 (Version None)
Quarter: 2004Q3

REPORT INFORMATION
  Report Type: 
  Country: None (occurrence: None)
  Receive Date: 20040921
  Receipt Date: 20040412
  Transmission Date: 20050211
  Serious: Yes (Death)
  Sender: FDA-Public Use
  Company Number: 163-20785-04040311

PATIENT
  Age: 60 Year
  Sex: Male
  Weight: 71 kg

DRUGS (5)
  1. THALOMID [Suspect]
     Indication: WALDENSTROM'S MACROGLOBULINAEMIA
     Dosage: 200 MG, QHS, ORAL
     Route: 048
     Dates: start: 20030917, end: 20040321
  2. RITUXIMAB (RITUXIMAB)  (INJECTION FOR INFUSION) [Suspect]
     Indication: WALDENSTROM'S MACROGLOBULINAEMIA
     Dosage: 375 MG/M2, WEEKLY X 4 WKS, THEN 8 WKS REST, INTRAVENOUS
     Route: 042
     Dates: start: 20030101
  3. FELODIPINE [Concomitant]
  4. LISINOPRIL [Concomitant]
  5. LOVASTATIN [Concomitant]

REACTIONS (2)
  - CARDIAC ARREST [None]
  - DEATH [None]
